FAERS Safety Report 4598074-0 (Version None)
Quarter: 2005Q1

REPORT INFORMATION
  Report Type: 
  Country: None (occurrence: None)
  Receive Date: 20050304
  Receipt Date: 20050223
  Transmission Date: 20050727
  Serious: Yes (Hospitalization)
  Sender: FDA-Public Use
  Company Number: 200511460US

PATIENT
  Sex: Female

DRUGS (8)
  1. DOCETAXEL [Suspect]
     Indication: NON-SMALL CELL LUNG CANCER
     Route: 042
     Dates: start: 20050204, end: 20050211
  2. GEMCITABINE [Suspect]
     Indication: NON-SMALL CELL LUNG CANCER
     Route: 042
     Dates: start: 20050204, end: 20050211
  3. DURAGESIC-100 [Concomitant]
     Indication: BACK PAIN
     Dates: start: 20050210
  4. MORPHINE SULFATE [Concomitant]
     Indication: BACK PAIN
     Dates: start: 20050210
  5. ZOMETA [Concomitant]
     Dates: start: 20050210
  6. CLINDAMYCIN [Concomitant]
     Indication: PNEUMONIA
     Dates: start: 20050204
  7. DECADRON [Concomitant]
     Indication: PREMEDICATION
     Dates: start: 20050204
  8. TESSALON [Concomitant]
     Indication: COUGH
     Dates: start: 20050204

REACTIONS (4)
  - HYPONATRAEMIA [None]
  - PNEUMONITIS [None]
  - RED CELL DISTRIBUTION WIDTH INCREASED [None]
  - SPUTUM PURULENT [None]
